FAERS Safety Report 8408778-7 (Version None)
Quarter: 2012Q2

REPORT INFORMATION
  Report Type: 
  Country: None (occurrence: None)
  Receive Date: 20120604
  Receipt Date: 20120522
  Transmission Date: 20120825
  Serious: Yes (Life-Threatening, Hospitalization, Other)
  Sender: FDA-Public Use
  Company Number: FR-ELI_LILLY_AND_COMPANY-FR201205007364

PATIENT
  Sex: Female

DRUGS (4)
  1. IMOVANE [Concomitant]
     Dosage: 7.5 MG, UNKNOWN
     Route: 065
     Dates: end: 20110329
  2. ZYPREXA [Suspect]
     Dosage: 5 MG, QD
     Route: 065
     Dates: end: 20110329
  3. CITALOPRAM HYDROBROMIDE [Concomitant]
     Dosage: 20 MG, UNKNOWN
     Route: 065
     Dates: end: 20110329
  4. RISPERDAL [Concomitant]
     Dosage: 2 MG, UNK

REACTIONS (2)
  - HEPATIC STEATOSIS [None]
  - HEPATITIS B SURFACE ANTIBODY POSITIVE [None]
